FAERS Safety Report 19163246 (Version 1)
Quarter: 2021Q2

REPORT INFORMATION
  Report Type: Spontaneous
  Country: US (occurrence: US)
  Receive Date: 20210420
  Receipt Date: 20210420
  Transmission Date: 20210717
  Serious: Yes (Hospitalization)
  Sender: FDA-Public Use
  Company Number: None

PATIENT
  Age: 74 Year
  Sex: Female

DRUGS (7)
  1. AMOX/K [Concomitant]
  2. LATANOPROST. [Concomitant]
     Active Substance: LATANOPROST
  3. EZETIMBE [Concomitant]
     Active Substance: EZETIMIBE
  4. FLUCONAZOLE. [Concomitant]
     Active Substance: FLUCONAZOLE
  5. ORENCIA [Suspect]
     Active Substance: ABATACEPT
     Indication: RHEUMATOID ARTHRITIS
     Route: 058
     Dates: start: 20201029
  6. FUROSEMIDE. [Concomitant]
     Active Substance: FUROSEMIDE
  7. APAP/CODEINE [Concomitant]
     Active Substance: ACETAMINOPHEN\CODEINE PHOSPHATE

REACTIONS (2)
  - Diverticulitis [None]
  - Therapy interrupted [None]

NARRATIVE: CASE EVENT DATE: 20210419
